FAERS Safety Report 6285178-X (Version None)
Quarter: 2009Q3

REPORT INFORMATION
  Report Type: 
  Country: None (occurrence: None)
  Receive Date: 20090727
  Receipt Date: 20090714
  Transmission Date: 20100115
  Serious: Yes (Other)
  Sender: FDA-Public Use
  Company Number: PHHY2009DE30550

PATIENT
  Sex: Female

DRUGS (2)
  1. LEPONEX [Suspect]
     Indication: SCHIZOAFFECTIVE DISORDER
     Dosage: UNK
     Dates: start: 20090101
  2. DIPIPERON [Concomitant]
     Indication: SCHIZOAFFECTIVE DISORDER
     Dosage: 80 MG, UNK

REACTIONS (2)
  - DEPRESSION [None]
  - MOOD ALTERED [None]
